FAERS Safety Report 19894482 (Version 1)
Quarter: 2021Q3

REPORT INFORMATION
  Report Type: Report from Study
  Country: US (occurrence: US)
  Receive Date: 20210928
  Receipt Date: 20210928
  Transmission Date: 20211014
  Serious: Yes (Hospitalization)
  Sender: FDA-Public Use
  Company Number: US-GILEAD-2021-0545871

PATIENT
  Sex: Male

DRUGS (1)
  1. IDELALISIB [Suspect]
     Active Substance: IDELALISIB
     Indication: FOLLICULAR LYMPHOMA
     Dosage: 150 MG, BID
     Route: 048
     Dates: start: 20210527

REACTIONS (2)
  - Intentional dose omission [Unknown]
  - Adverse drug reaction [Unknown]
